FAERS Safety Report 7275408-X (Version None)
Quarter: 2011Q1

REPORT INFORMATION
  Report Type: 
  Country: None (occurrence: None)
  Receive Date: 20110125
  Receipt Date: 20110112
  Transmission Date: 20110831
  Serious: Yes (Other)
  Sender: FDA-Public Use
  Company Number: IDA-00464

PATIENT
  Age: 57 Year
  Sex: Female

DRUGS (2)
  1. ZOCOR [Concomitant]
  2. AVLOCARDYL (PROPRANOLOL) [Suspect]
     Indication: HYPERTENSION
     Dosage: 160 MG DAILY ORAL FORMULATION: TABLET
     Route: 048
     Dates: start: 20000101, end: 20040101

REACTIONS (1)
  - WEIGHT INCREASED [None]
